FAERS Safety Report 20630400 (Version 4)
Quarter: 2022Q2

REPORT INFORMATION
  Report Type: Report from Study
  Country: IE (occurrence: IE)
  Receive Date: 20220324
  Receipt Date: 20220613
  Transmission Date: 20220720
  Serious: Yes (Other)
  Sender: FDA-Public Use
  Company Number: IE-KOREA IPSEN Pharma-2022-07489

PATIENT
  Age: 69 Year
  Sex: Female

DRUGS (8)
  1. LANREOTIDE ACETATE [Suspect]
     Active Substance: LANREOTIDE ACETATE
     Indication: Neuroendocrine tumour
     Dosage: FREQUENCY: AS PER PRESCRIPTION
     Route: 058
     Dates: start: 20211223
  2. SENNA [Concomitant]
     Active Substance: SENNA LEAF\SENNOSIDES\SENNOSIDES A AND B
     Route: 050
  3. MOVICOL [Concomitant]
     Active Substance: POLYETHYLENE GLYCOL 3350\POTASSIUM CHLORIDE\SODIUM BICARBONATE\SODIUM CHLORIDE
     Route: 050
  4. METOCLOPRAMIDE [Concomitant]
     Active Substance: METOCLOPRAMIDE
     Route: 050
  5. ESOMEPRAZOLE [Concomitant]
     Active Substance: ESOMEPRAZOLE
     Dosage: ONCE DAILY
     Route: 050
  6. THIAMINE [Concomitant]
     Active Substance: THIAMINE
     Route: 050
  7. SONA BALANCE [Concomitant]
     Dosage: ONCE DAILY
     Route: 050
  8. ZOPICLONE [Concomitant]
     Active Substance: ZOPICLONE
     Dosage: ONCE DAILY
     Route: 050

REACTIONS (1)
  - Ascites [Recovering/Resolving]

NARRATIVE: CASE EVENT DATE: 20220101
